FAERS Safety Report 7152773-5 (Version None)
Quarter: 2010Q4

REPORT INFORMATION
  Report Type: 
  Country: None (occurrence: None)
  Receive Date: 20101208
  Receipt Date: 20101208
  Transmission Date: 20110411
  Serious: Yes (Hospitalization)
  Sender: FDA-Public Use
  Company Number: None

PATIENT
  Sex: Male
  Weight: 101.4 kg

DRUGS (4)
  1. BEVACIZUMAB (RUBMAB VEGF) [Suspect]
     Dosage: 1500 MG
     Dates: end: 20101103
  2. CARBOPLATIN [Suspect]
     Dosage: 1053 MG
     Dates: end: 20101103
  3. TAXOL [Suspect]
     Dosage: 414 MG
     Dates: end: 20101103
  4. METOPROLOL TARTRATE [Concomitant]

REACTIONS (2)
  - DIVERTICULUM INTESTINAL [None]
  - INTESTINAL PERFORATION [None]
